FAERS Safety Report 6371694-9 (Version None)
Quarter: 2009Q3

REPORT INFORMATION
  Report Type: 
  Country: None (occurrence: None)
  Receive Date: 20090923
  Receipt Date: 20080807
  Transmission Date: 20100115
  Serious: Yes (Hospitalization)
  Sender: FDA-Public Use
  Company Number: US-ASTRAZENECA-2008UW13491

PATIENT
  Age: 43 Year
  Sex: Female
  Weight: 96.2 kg

DRUGS (4)
  1. SEROQUEL [Suspect]
     Route: 048
     Dates: end: 20080201
  2. NOVOLOG [Concomitant]
  3. LEXAPRO [Concomitant]
     Indication: BIPOLAR DISORDER
  4. ABILIFY [Concomitant]
     Indication: BIPOLAR I DISORDER

REACTIONS (4)
  - BLOOD GLUCOSE INCREASED [None]
  - GLYCOSYLATED HAEMOGLOBIN INCREASED [None]
  - TYPE 1 DIABETES MELLITUS [None]
  - WEIGHT DECREASED [None]
